FAERS Safety Report 6085782-8 (Version None)
Quarter: 2009Q1

REPORT INFORMATION
  Report Type: 
  Country: None (occurrence: None)
  Receive Date: 20090217
  Receipt Date: 20090217
  Transmission Date: 20090719
  Serious: Yes (Other)
  Sender: FDA-Public Use
  Company Number: None

PATIENT
  Age: 44 Year
  Sex: Male
  Weight: 88.4514 kg

DRUGS (1)
  1. METOPROLOL SUCCINATE EXTENDED RELEASE [Suspect]
     Indication: ANXIETY
     Dosage: 25 MG ONCE DAILY PO
     Route: 048
     Dates: start: 20050101, end: 20090209

REACTIONS (4)
  - HEART RATE INCREASED [None]
  - HYPERTENSION [None]
  - PANIC REACTION [None]
  - PRODUCT QUALITY ISSUE [None]
